FAERS Safety Report 12187185 (Version 1)
Quarter: 2016Q1

REPORT INFORMATION
  Report Type: Spontaneous
  Country: TW (occurrence: TW)
  Receive Date: 20160317
  Receipt Date: 20160317
  Transmission Date: 20160526
  Serious: Yes (Hospitalization, Other)
  Sender: FDA-Public Use
  Company Number: TW-SA-2016SA051035

PATIENT
  Age: 11 Year
  Sex: Male
  Weight: 40 kg

DRUGS (1)
  1. MYOZYME [Suspect]
     Active Substance: ALGLUCOSIDASE ALFA
     Indication: GLYCOGEN STORAGE DISEASE TYPE II
     Route: 041
     Dates: start: 20021220

REACTIONS (5)
  - Klebsiella test positive [Unknown]
  - Pseudomonas test positive [Unknown]
  - Mastoiditis [Unknown]
  - Otorrhoea [Unknown]
  - Otitis media chronic [Unknown]

NARRATIVE: CASE EVENT DATE: 201310
